FAERS Safety Report 6240458-9 (Version None)
Quarter: 2009Q2

REPORT INFORMATION
  Report Type: 
  Country: None (occurrence: None)
  Receive Date: 20090618
  Receipt Date: 20090618
  Transmission Date: 20091009
  Serious: No
  Sender: FDA-Public Use
  Company Number: None

PATIENT
  Age: 48 Year
  Sex: Male
  Weight: 79.3795 kg

DRUGS (3)
  1. ZICAM LIQUID NASAL GEL .50FL.OZ./15ML GEL ZICAM 11C --MATRIXX INITIATI [Suspect]
     Indication: NASOPHARYNGITIS
     Dosage: 1 PUMP EVERY 4 HOURS INHAL
     Route: 055
     Dates: start: 20040102, end: 20040103
  2. ZICAM LIQUID NASAL GEL .50FL.OZ./15ML GEL ZICAM 11C --MATRIXX INITIATI [Suspect]
     Indication: PROPHYLAXIS
     Dosage: 1 PUMP EVERY 4 HOURS INHAL
     Route: 055
     Dates: start: 20040102, end: 20040103
  3. ZICAM COLD REMEDY SWABS [Suspect]
     Indication: NASOPHARYNGITIS
     Dosage: 1 SWAB EVERY 4 HOURS ENDOSINUSIAL
     Route: 006
     Dates: start: 20040102, end: 20040104

REACTIONS (1)
  - ANOSMIA [None]
